FAERS Safety Report 7505399-5 (Version None)
Quarter: 2011Q2

REPORT INFORMATION
  Report Type: 
  Country: None (occurrence: None)
  Receive Date: 20110526
  Receipt Date: 20110516
  Transmission Date: 20111010
  Serious: Yes (Other)
  Sender: FDA-Public Use
  Company Number: US-BAYER-201033400NA

PATIENT
  Age: 29 Year
  Sex: Female

DRUGS (1)
  1. YASMIN [Suspect]
     Route: 048
     Dates: start: 20031201

REACTIONS (3)
  - CHOLECYSTITIS CHRONIC [None]
  - CHOLECYSTITIS [None]
  - CHOLELITHIASIS [None]
